FAERS Safety Report 6588719-8 (Version None)
Quarter: 2010Q1

REPORT INFORMATION
  Report Type: 
  Country: None (occurrence: None)
  Receive Date: 20100212
  Receipt Date: 20100128
  Transmission Date: 20100710
  Serious: Yes (Other)
  Sender: FDA-Public Use
  Company Number: 003512

PATIENT
  Age: 32 Year
  Sex: Male

DRUGS (6)
  1. CO-CODAMOL (CO-CODAMOL) [Suspect]
  2. METHADONE HCL [Suspect]
  3. CLOZARIL [Suspect]
     Indication: SCHIZOPHRENIA
     Dates: start: 20080104
  4. AMITRIPTYLINE HYDROCHLORIDE [Suspect]
     Dosage: 25 MG
     Dates: start: 20091201
  5. EPILIM CHRONO (EPILIM CHRONO) [Suspect]
     Dosage: 1200 MG, ORAL
     Route: 048
     Dates: start: 20080601
  6. VENLAFAXINE HCL [Suspect]
     Dosage: 225 MG, ORAL
     Route: 048
     Dates: start: 20080101

REACTIONS (5)
  - ALTERED STATE OF CONSCIOUSNESS [None]
  - CONVULSION [None]
  - FALL [None]
  - MUSCLE TWITCHING [None]
  - TREATMENT NONCOMPLIANCE [None]
